FAERS Safety Report 14125117 (Version 2)
Quarter: 2017Q4

REPORT INFORMATION
  Report Type: Spontaneous
  Country: IT (occurrence: IT)
  Receive Date: 20171025
  Receipt Date: 20171030
  Transmission Date: 20180321
  Serious: Yes (Other)
  Sender: FDA-Public Use
  Company Number: IT-TEVA-817667ACC

PATIENT
  Age: 61 Year
  Sex: Female
  Weight: 81 kg

DRUGS (1)
  1. LETROZOLE. [Suspect]
     Active Substance: LETROZOLE
     Indication: BREAST NEOPLASM
     Dosage: 2.5 MILLIGRAM DAILY;
     Route: 048
     Dates: start: 20170227

REACTIONS (1)
  - Vitreous detachment [Recovering/Resolving]

NARRATIVE: CASE EVENT DATE: 20171004
